FAERS Safety Report 7252009-0 (Version None)
Quarter: 2011Q1

REPORT INFORMATION
  Report Type: 
  Country: None (occurrence: None)
  Receive Date: 20110128
  Receipt Date: 20100108
  Transmission Date: 20110831
  Serious: No
  Sender: FDA-Public Use
  Company Number: US-ABBOTT-10P-163-0619046-00

PATIENT
  Age: 48 Year
  Sex: Female
  Weight: 67.192 kg

DRUGS (5)
  1. HUMIRA [Suspect]
     Dates: start: 20091126
  2. HUMIRA [Suspect]
     Dates: start: 20080101, end: 20080101
  3. HUMIRA [Suspect]
     Indication: RHEUMATOID ARTHRITIS
     Dates: start: 20080101, end: 20091001
  4. NORCO [Concomitant]
  5. THYROID TAB [Concomitant]
     Indication: HYPOTHYROIDISM
     Dates: start: 20040101

REACTIONS (4)
  - VOMITING [None]
  - NASOPHARYNGITIS [None]
  - HERPES ZOSTER [None]
  - H1N1 INFLUENZA [None]
